FAERS Safety Report 25000096 (Version 1)
Quarter: 2025Q1

REPORT INFORMATION
  Report Type: Spontaneous
  Country: US (occurrence: US)
  Receive Date: 20250222
  Receipt Date: 20250222
  Transmission Date: 20250409
  Serious: No
  Sender: SANOFI AVENTIS
  Company Number: US-SA-2025SA047920

PATIENT
  Age: 28 Year
  Sex: Male

DRUGS (4)
  1. DUPIXENT [Suspect]
     Active Substance: DUPILUMAB
     Indication: Dermatitis atopic
     Dosage: 300 MG, QOW
     Route: 058
     Dates: start: 202306
  2. ALLOPURINOL [Concomitant]
     Active Substance: ALLOPURINOL
  3. FUROSEMIDE [Concomitant]
     Active Substance: FUROSEMIDE
  4. PREDNISONE [Concomitant]
     Active Substance: PREDNISONE

REACTIONS (4)
  - Nausea [Recovering/Resolving]
  - Joint swelling [Recovering/Resolving]
  - Insomnia [Recovering/Resolving]
  - Arthralgia [Recovering/Resolving]

NARRATIVE: CASE EVENT DATE: 20240101
